FAERS Safety Report 11405877 (Version 1)
Quarter: 2015Q3

REPORT INFORMATION
  Report Type: Spontaneous
  Country: FR (occurrence: FR)
  Receive Date: 20150821
  Receipt Date: 20150821
  Transmission Date: 20151125
  Serious: Yes (Hospitalization, Other)
  Sender: FDA-Public Use
  Company Number: FR-ASTRAZENECA-2015SE79608

PATIENT
  Age: 67 Year
  Sex: Female

DRUGS (8)
  1. KARDEGIC [Suspect]
     Active Substance: ASPIRIN LYSINE
     Route: 048
     Dates: start: 201503
  2. COZAAR [Suspect]
     Active Substance: LOSARTAN POTASSIUM
     Route: 048
  3. TRAMADOL BASE [Concomitant]
     Active Substance: TRAMADOL
     Route: 048
  4. VOLTARENE [Suspect]
     Active Substance: DICLOFENAC SODIUM
     Route: 048
     Dates: start: 2011, end: 201502
  5. LAMALINE [Suspect]
     Active Substance: ACETAMINOPHEN\CAFFEINE\OPIUM
     Route: 054
  6. VOLTARENE [Suspect]
     Active Substance: DICLOFENAC SODIUM
     Route: 048
     Dates: start: 201502
  7. CRESTOR [Suspect]
     Active Substance: ROSUVASTATIN CALCIUM
     Route: 048
  8. UVEDOSE [Concomitant]
     Active Substance: CHOLECALCIFEROL
     Route: 048

REACTIONS (7)
  - Melaena [Unknown]
  - Haematemesis [Unknown]
  - Syncope [Unknown]
  - Rectal haemorrhage [Unknown]
  - Hypotension [Unknown]
  - Anaemia [Recovering/Resolving]
  - Peptic ulcer haemorrhage [Recovered/Resolved]

NARRATIVE: CASE EVENT DATE: 20150630
